FAERS Safety Report 6717131-3 (Version None)
Quarter: 2010Q2

REPORT INFORMATION
  Report Type: 
  Country: None (occurrence: None)
  Receive Date: 20100505
  Receipt Date: 20100503
  Transmission Date: 20101027
  Serious: Yes (Disabling)
  Sender: FDA-Public Use
  Company Number: 2010AP000855

PATIENT
  Age: 45 Year
  Sex: Female

DRUGS (17)
  1. TOPIRAMATE [Suspect]
     Indication: HEADACHE
     Dosage: 50 MG;BID;PO
     Route: 048
     Dates: start: 20091201
  2. AMITRIPTYLINE [Concomitant]
  3. BETHAHISTINE [Concomitant]
  4. CHLORPHENAMINE [Concomitant]
  5. FOLIC ACID [Concomitant]
  6. MORPHINE [Concomitant]
  7. OMEPRAZOLE [Concomitant]
  8. ONDANSETRON [Concomitant]
  9. MORPHINE SULFATE [Concomitant]
  10. PARACETAMOL [Concomitant]
  11. PERINDOPRIL ERBUMINE [Concomitant]
  12. SENNA [Concomitant]
  13. TRAMADOL HCL [Concomitant]
  14. CALCIUM CARBONATE [Concomitant]
  15. SODIUM ALGINATE [Concomitant]
  16. SODIUM BICARBONATE [Concomitant]
  17. ACETYSALICYLIC ACID [Concomitant]

REACTIONS (1)
  - HALLUCINATION, AUDITORY [None]
